FAERS Safety Report 10659128 (Version 1)
Quarter: 2014Q4

REPORT INFORMATION
  Report Type: Spontaneous
  Country: US (occurrence: US)
  Receive Date: 20141217
  Receipt Date: 20141217
  Transmission Date: 20150529
  Serious: No
  Sender: FDA-Public Use
  Company Number: US-CELGENEUS-163-20785-14092003

PATIENT
  Sex: Male

DRUGS (3)
  1. THALOMID [Suspect]
     Active Substance: THALIDOMIDE
     Indication: APHTHOUS STOMATITIS
     Route: 048
     Dates: start: 200910
  2. THALOMID [Suspect]
     Active Substance: THALIDOMIDE
     Dosage: 100MG-200MG
     Route: 048
     Dates: start: 200912
  3. THALOMID [Suspect]
     Active Substance: THALIDOMIDE
     Route: 048
     Dates: start: 201402

REACTIONS (2)
  - Pyrexia [Unknown]
  - Drug dose omission [Unknown]
